FAERS Safety Report 19675678 (Version 1)
Quarter: 2021Q3

REPORT INFORMATION
  Report Type: Spontaneous
  Country: US (occurrence: US)
  Receive Date: 20210809
  Receipt Date: 20210809
  Transmission Date: 20211014
  Serious: Yes (Death)
  Sender: FDA-Public Use
  Company Number: US-ROCHE-2886350

PATIENT
  Age: 81 Year
  Sex: Male

DRUGS (15)
  1. ESBRIET [Suspect]
     Active Substance: PIRFENIDONE
     Indication: IDIOPATHIC PULMONARY FIBROSIS
     Dosage: TAKE 3 TABLETS BY MOUTH  3 TIMES A DAY WITH MEAL
     Route: 048
     Dates: start: 20200505
  2. FLONASE [Concomitant]
     Active Substance: FLUTICASONE PROPIONATE
  3. SIMVASTATIN. [Concomitant]
     Active Substance: SIMVASTATIN
  4. BENAZEPRIL [Concomitant]
     Active Substance: BENAZEPRIL HYDROCHLORIDE
  5. GEMFIBROZIL. [Concomitant]
     Active Substance: GEMFIBROZIL
  6. METOPROLOL TARTRATE. [Concomitant]
     Active Substance: METOPROLOL TARTRATE
  7. PIOGLITAZONE. [Concomitant]
     Active Substance: PIOGLITAZONE
  8. LANTUS SOLOSTAR [Concomitant]
     Active Substance: INSULIN GLARGINE
  9. PANTOPRAZOLE [Concomitant]
     Active Substance: PANTOPRAZOLE
  10. LOPERAMIDE [Concomitant]
     Active Substance: LOPERAMIDE
  11. LEVOTHYROXINE. [Concomitant]
     Active Substance: LEVOTHYROXINE
     Dosage: 125 MCG
  12. VITAMIN B COMPLEX [Concomitant]
     Active Substance: CYANOCOBALAMIN\DEXPANTHENOL\NIACINAMIDE\PYRIDOXINE HYDROCHLORIDE\RIBOFLAVIN 5^-PHOSPHATE SODIUM\THIAMINE HYDROCHLORIDE\VITAMIN B COMPLEX
  13. LISINOPRIL. [Concomitant]
     Active Substance: LISINOPRIL
  14. ALPHA LIPOIC ACID [Concomitant]
     Active Substance: .ALPHA.-LIPOIC ACID
  15. TRAVATAN Z [Concomitant]
     Active Substance: TRAVOPROST
     Dosage: DRO 0.004 %

REACTIONS (1)
  - Death [Fatal]

NARRATIVE: CASE EVENT DATE: 20210717
